FAERS Safety Report 4659630-4 (Version None)
Quarter: 2005Q2

REPORT INFORMATION
  Report Type: 
  Country: None (occurrence: None)
  Receive Date: 20050411
  Receipt Date: 20050121
  Transmission Date: 20051028
  Serious: No
  Sender: FDA-Public Use
  Company Number: A03200500266

PATIENT
  Sex: Male

DRUGS (1)
  1. UROXATRAL [Suspect]
     Dosage: ORAL
     Route: 048

REACTIONS (2)
  - CHEST PAIN [None]
  - HEART RATE INCREASED [None]
